FAERS Safety Report 22029509 (Version 1)
Quarter: 2023Q1

REPORT INFORMATION
  Report Type: Spontaneous
  Country: US (occurrence: None)
  Receive Date: 20230221
  Receipt Date: 20230221
  Transmission Date: 20230418
  Serious: No
  Sender: FDA-Public Use
  Company Number: None

PATIENT
  Age: 43 Year
  Sex: Male

DRUGS (1)
  1. TRAMADOL [Suspect]
     Active Substance: TRAMADOL
     Indication: Osteoarthritis

REACTIONS (3)
  - Drug intolerance [None]
  - Gastrointestinal disorder [None]
  - Drug hypersensitivity [None]

NARRATIVE: CASE EVENT DATE: 20230221
